FAERS Safety Report 13155401 (Version 1)
Quarter: 2017Q1

REPORT INFORMATION
  Report Type: Not Available
  Country: US (occurrence: US)
  Receive Date: 20170126
  Receipt Date: 20170126
  Transmission Date: 20170428
  Serious: No
  Sender: FDA-Public Use
  Company Number: US-ANIPHARMA-2016-US-003834

PATIENT
  Age: 55 Year
  Sex: Male

DRUGS (5)
  1. SUTENT [Concomitant]
     Active Substance: SUNITINIB MALATE
     Dosage: 50 MG DAILY FOR 2 WEEKS; ONE WEEK OFF
     Route: 065
     Dates: start: 20151216
  2. CARVEDILOL. [Concomitant]
     Active Substance: CARVEDILOL
  3. NIFEDIPINE. [Concomitant]
     Active Substance: NIFEDIPINE
  4. LISINOPRIL. [Concomitant]
     Active Substance: LISINOPRIL
  5. REGLAN [Suspect]
     Active Substance: METOCLOPRAMIDE HYDROCHLORIDE
     Dosage: UNKNOWN
     Route: 048
     Dates: start: 201512

REACTIONS (1)
  - Drug ineffective [Not Recovered/Not Resolved]

NARRATIVE: CASE EVENT DATE: 201512
